FAERS Safety Report 20743851 (Version 4)
Quarter: 2022Q2

REPORT INFORMATION
  Report Type: Spontaneous
  Country: FI (occurrence: FI)
  Receive Date: 20220425
  Receipt Date: 20220509
  Transmission Date: 20220720
  Serious: Yes (Other)
  Sender: FDA-Public Use
  Company Number: FI-UCBSA-2022022612

PATIENT
  Sex: Male

DRUGS (5)
  1. VIMPAT [Suspect]
     Active Substance: LACOSAMIDE
     Indication: Epilepsy
     Dosage: 20 MILLILITER, 2X/DAY (BID)
  2. BRIVIACT [Suspect]
     Active Substance: BRIVARACETAM
     Indication: Epilepsy
     Dosage: 10 MILLILITER, 2X/DAY (BID)
  3. CHOLESTEROL [Concomitant]
     Active Substance: CHOLESTEROL
     Indication: Coronary artery disease
  4. UNSPECIFIED INGREDIENT [Concomitant]
     Active Substance: UNSPECIFIED INGREDIENT
     Indication: Cough
     Dosage: UNK
     Dates: start: 20220414
  5. UNSPECIFIED INGREDIENT [Concomitant]
     Active Substance: UNSPECIFIED INGREDIENT
     Indication: Balanoposthitis

REACTIONS (14)
  - Epilepsy [Recovered/Resolved]
  - Pneumonia [Unknown]
  - Balanoposthitis [Recovered/Resolved]
  - Fall [Unknown]
  - Hip surgery [Unknown]
  - Hip fracture [Unknown]
  - Dysuria [Not Recovered/Not Resolved]
  - Dysgeusia [Unknown]
  - General physical health deterioration [Unknown]
  - Oral surgery [Unknown]
  - Cough [Unknown]
  - Coronavirus test negative [Unknown]
  - Product storage error [Unknown]
  - Product prescribing error [Unknown]

NARRATIVE: CASE EVENT DATE: 20210101
